FAERS Safety Report 21363802 (Version 1)
Quarter: 2022Q3

REPORT INFORMATION
  Report Type: Spontaneous
  Country: US (occurrence: None)
  Receive Date: 20220921
  Receipt Date: 20220921
  Transmission Date: 20221026
  Serious: Yes (Other)
  Sender: FDA-Public Use
  Company Number: None

PATIENT
  Age: 63 Year
  Sex: Female
  Weight: 72 kg

DRUGS (7)
  1. PAXLOVID [Suspect]
     Active Substance: NIRMATRELVIR\RITONAVIR
     Indication: COVID-19
     Dosage: FREQUENCY : TWICE A DAY;?
     Route: 048
     Dates: start: 20220920, end: 20220920
  2. VICKS DAYQUIL [Concomitant]
     Active Substance: DEXTROMETHORPHAN HYDROBROMIDE\GUAIFENESIN
     Dates: end: 20220920
  3. TYLENOL [Concomitant]
     Active Substance: ACETAMINOPHEN
     Dates: end: 20220920
  4. THE ORIGINAL NATURAL HERB COUGH DROPS [Concomitant]
     Active Substance: MENTHOL
     Dates: end: 20220920
  5. THERAFLU NOS [Concomitant]
     Active Substance: ACETAMINOPHEN AND OR DEXTROMETHORPHAN AND OR DIPHENHYDRAMINE AND OR GUAIFENESIN AND OR PHENYLEPHRINE
     Dates: end: 20220920
  6. BLACKBERRY [Concomitant]
     Active Substance: BLACKBERRY
     Dates: end: 20220920
  7. VITAMIN C [Concomitant]
     Active Substance: ASCORBIC ACID
     Dates: end: 20220920

REACTIONS (4)
  - Diarrhoea [None]
  - Vomiting [None]
  - Dysgeusia [None]
  - Chest discomfort [None]

NARRATIVE: CASE EVENT DATE: 20220920
